FAERS Safety Report 17826815 (Version 1)
Quarter: 2020Q2

REPORT INFORMATION
  Report Type: Spontaneous
  Country: US (occurrence: US)
  Receive Date: 20200527
  Receipt Date: 20200527
  Transmission Date: 20200714
  Serious: No
  Sender: FDA-Public Use
  Company Number: US-JNJFOC-20200506233

PATIENT
  Age: 37 Year
  Sex: Male
  Weight: 50 kg

DRUGS (1)
  1. MENS ROGAINE EXTRA STRENGTH [Suspect]
     Active Substance: MINOXIDIL
     Indication: PRODUCT USED FOR UNKNOWN INDICATION
     Dosage: DOSE AND FREQUENCY: 5ML AND ONCE.?THE PRODUCT WAS LAST ADMINISTERED ON 02/MAY/2020.
     Route: 061
     Dates: start: 20200301

REACTIONS (5)
  - Inappropriate schedule of product administration [Unknown]
  - Overdose [Unknown]
  - Application site rash [Recovered/Resolved]
  - Application site erythema [Recovering/Resolving]
  - Application site pain [Recovered/Resolved]

NARRATIVE: CASE EVENT DATE: 20200301
